FAERS Safety Report 24278077 (Version 1)
Quarter: 2024Q3

REPORT INFORMATION
  Report Type: Spontaneous
  Country: US (occurrence: None)
  Receive Date: 20240830
  Receipt Date: 20240830
  Transmission Date: 20241016
  Serious: No
  Sender: Public
  Company Number: None

PATIENT
  Age: 17 Year
  Sex: Male
  Weight: 51.75 kg

DRUGS (4)
  1. DUPIXENT [Suspect]
     Active Substance: DUPILUMAB
     Indication: Eosinophilic oesophagitis
     Dosage: 1 INJECTION WEEKLY SUBCUTANEOUS
     Route: 058
     Dates: start: 20240828, end: 20240830
  2. GENOTROPIN [Concomitant]
     Active Substance: SOMATROPIN
  3. ANASTROZOLE [Concomitant]
     Active Substance: ANASTROZOLE
  4. CLARITIN [Concomitant]
     Active Substance: LORATADINE

REACTIONS (2)
  - Arthralgia [None]
  - Rash [None]

NARRATIVE: CASE EVENT DATE: 20240830
